FAERS Safety Report 12969993 (Version 1)
Quarter: 2016Q4

REPORT INFORMATION
  Report Type: Spontaneous
  Country: GB (occurrence: GB)
  Receive Date: 20161123
  Receipt Date: 20161123
  Transmission Date: 20170207
  Serious: Yes (Other)
  Sender: FDA-Public Use
  Company Number: GB-TEVA-714335ACC

PATIENT
  Sex: Female

DRUGS (1)
  1. ACETAZOLAMIDE. [Suspect]
     Active Substance: ACETAZOLAMIDE
     Indication: EPILEPSY
     Dosage: 250 MG AT NIGHT AND HALF A TABLET AT NIGHT

REACTIONS (3)
  - Seizure [Unknown]
  - Eye pain [Unknown]
  - Product physical issue [Unknown]
